FAERS Safety Report 6648369-1 (Version None)
Quarter: 2010Q1

REPORT INFORMATION
  Report Type: 
  Country: None (occurrence: None)
  Receive Date: 20100324
  Receipt Date: 20100317
  Transmission Date: 20100710
  Serious: Yes (Other)
  Sender: FDA-Public Use
  Company Number: TR-ROCHE-692204

PATIENT
  Sex: Male
  Weight: 98 kg

DRUGS (2)
  1. PEGASYS [Suspect]
     Route: 058
     Dates: start: 20091026
  2. COPEGUS [Concomitant]

REACTIONS (1)
  - RAYNAUD'S PHENOMENON [None]
